FAERS Safety Report 12916850 (Version 1)
Quarter: 2016Q4

REPORT INFORMATION
  Report Type: Spontaneous
  Country: US (occurrence: US)
  Receive Date: 20161107
  Receipt Date: 20161107
  Transmission Date: 20170207
  Serious: No
  Sender: FDA-Public Use
  Company Number: US-AMGEN-USASP2016093977

PATIENT
  Age: 79 Year
  Sex: Female

DRUGS (2)
  1. ARANESP [Suspect]
     Active Substance: DARBEPOETIN ALFA
     Indication: RENAL FAILURE
  2. ARANESP [Suspect]
     Active Substance: DARBEPOETIN ALFA
     Indication: RED BLOOD CELL COUNT DECREASED
     Dosage: UNK
     Route: 065

REACTIONS (1)
  - Liquid product physical issue [Unknown]
